FAERS Safety Report 10148793 (Version 2)
Quarter: 2014Q2

REPORT INFORMATION
  Report Type: Spontaneous
  Country: BR (occurrence: BR)
  Receive Date: 20140502
  Receipt Date: 20140512
  Transmission Date: 20141212
  Serious: Yes (Hospitalization)
  Sender: FDA-Public Use
  Company Number: BR-AMGEN INC.-BRASP2014031671

PATIENT
  Sex: Female

DRUGS (8)
  1. ENBREL [Suspect]
     Indication: RHEUMATOID ARTHRITIS
     Dosage: UNK
     Route: 065
     Dates: start: 201210
  2. SOTALOL HYDROCHLORIDE [Concomitant]
     Dosage: UNK
  3. DEFLAZACORT [Concomitant]
     Dosage: UNK
  4. MELOXICAM [Concomitant]
     Dosage: 15 MG, UNK
  5. FAMOTIDINE [Concomitant]
     Dosage: UNK
  6. RALOXIFENE [Concomitant]
     Dosage: UNK
  7. ARAVA [Concomitant]
     Dosage: UNK
  8. CORUS                              /00023550/ [Concomitant]
     Dosage: UNK

REACTIONS (2)
  - Pancreatic cyst [Unknown]
  - Weight decreased [Unknown]
